FAERS Safety Report 13054050 (Version 1)
Quarter: 2016Q4

REPORT INFORMATION
  Report Type: Spontaneous
  Country: US (occurrence: US)
  Receive Date: 20161222
  Receipt Date: 20161222
  Transmission Date: 20170207
  Serious: No
  Sender: FDA-Public Use
  Company Number: US-MYLANLABS-2016M1012253

PATIENT

DRUGS (2)
  1. PLAVIX [Concomitant]
     Active Substance: CLOPIDOGREL BISULFATE
     Indication: ANTICOAGULANT THERAPY
     Dosage: UNK
  2. SOTRADECOL [Suspect]
     Active Substance: SODIUM TETRADECYL SULFATE
     Indication: VARICOSE VEIN
     Dosage: 2 ML, ONCE
     Route: 042
     Dates: start: 2016, end: 2016

REACTIONS (1)
  - Drug ineffective [Recovered/Resolved]

NARRATIVE: CASE EVENT DATE: 2016
